FAERS Safety Report 7214920-6 (Version None)
Quarter: 2011Q1

REPORT INFORMATION
  Report Type: 
  Country: None (occurrence: None)
  Receive Date: 20110107
  Receipt Date: 20100621
  Transmission Date: 20110831
  Serious: No
  Sender: FDA-Public Use
  Company Number: A0859577A

PATIENT
  Sex: Male

DRUGS (10)
  1. LOVAZA [Suspect]
     Dosage: 4G PER DAY
     Route: 048
     Dates: start: 20091101
  2. MEDICATION FOR HIGH BLOOD PRESSURE [Concomitant]
  3. NEURONTIN [Concomitant]
  4. NIASPAN [Concomitant]
  5. LOPID [Concomitant]
  6. DILANTIN [Concomitant]
  7. LOVAZA [Suspect]
  8. CRESTOR [Concomitant]
  9. METFORMIN [Concomitant]
  10. FIORICET [Concomitant]

REACTIONS (5)
  - BONE PAIN [None]
  - DRUG INEFFECTIVE [None]
  - PAIN OF SKIN [None]
  - ABDOMINAL DISCOMFORT [None]
  - MUSCLE SPASMS [None]
